FAERS Safety Report 6641628 (Version 2)
Quarter: 2013Q3

REPORT INFORMATION
  Report Type: Spontaneous
  Country: FR (occurrence: FR)
  Receive Date: 20080516
  Receipt Date: 20130927
  Transmission Date: 20140515
  Serious: Yes (Hospitalization, Other)
  Sender: FDA-Public Use
  Company Number: FR-JNJFOC-20080501837

PATIENT
  Age: 10 Year
  Sex: 0

DRUGS (4)
  1. EPITOMAX [Suspect]
     Indication: EPILEPSY
     Dosage: IN 2 DOSES
     Route: 048
  2. EPITOMAX [Suspect]
     Indication: EPILEPSY
     Dosage: IN 2 DOSES
     Route: 048
     Dates: end: 200607
  3. CLONAZEPAM [Suspect]
     Indication: EPILEPSY
     Route: 065
  4. VIGABATRIN [Suspect]
     Indication: EPILEPSY
     Route: 065

REACTIONS (23)
  - Septic shock [Recovered/Resolved]
  - Heat stroke [Recovered/Resolved]
  - Disseminated intravascular coagulation [Recovered/Resolved]
  - Circulatory collapse [Recovered/Resolved]
  - Haematemesis [Recovered/Resolved]
  - Renal failure [Recovered/Resolved]
  - Hepatocellular injury [Recovered/Resolved]
  - Rhabdomyolysis [Recovered/Resolved]
  - Tachypnoea [Recovered/Resolved]
  - Inflammation [Recovered/Resolved]
  - Anuria [Recovered/Resolved]
  - Leukocytosis [Recovered/Resolved]
  - Dehydration [Recovered/Resolved]
  - Purpura [Recovered/Resolved]
  - Convulsion [Recovered/Resolved]
  - Pallor [Recovered/Resolved]
  - Hyperthermia [Recovered/Resolved]
  - Stupor [Recovered/Resolved]
  - Anhidrosis [Recovered/Resolved]
  - Epistaxis [Recovered/Resolved]
  - Gastritis [Unknown]
  - Prothrombin time prolonged [Unknown]
  - Sedation [Unknown]
